FAERS Safety Report 21332072 (Version 1)
Quarter: 2022Q3

REPORT INFORMATION
  Report Type: Spontaneous
  Country: US (occurrence: None)
  Receive Date: 20220913
  Receipt Date: 20220913
  Transmission Date: 20221026
  Serious: No
  Sender: FDA-Public Use
  Company Number: None

PATIENT
  Age: 39 Year
  Sex: Female
  Weight: 60.24 kg

DRUGS (4)
  1. KISQALI [Suspect]
     Active Substance: RIBOCICLIB
     Indication: Breast cancer female
     Dosage: 600MG  3W ON 1W OFF ORAL?
     Route: 048
     Dates: start: 202201
  2. ADVIL [Concomitant]
     Active Substance: IBUPROFEN
  3. EXCEDRIN [Concomitant]
     Active Substance: ACETAMINOPHEN\ASPIRIN\CAFFEINE
  4. WOMENS MULTIVITAMIN [Concomitant]

REACTIONS (2)
  - COVID-19 [None]
  - Therapy interrupted [None]
